FAERS Safety Report 5611561-9 (Version None)
Quarter: 2008Q1

REPORT INFORMATION
  Report Type: 
  Country: None (occurrence: None)
  Receive Date: 20080201
  Receipt Date: 20080109
  Transmission Date: 20080703
  Serious: No
  Sender: FDA-Public Use
  Company Number: US-BOEHRINGER INGELHEIM GMBH, GERMANY-2008-BP-00560BP

PATIENT
  Sex: Female

DRUGS (8)
  1. SPIRIVA [Suspect]
     Indication: CHRONIC OBSTRUCTIVE PULMONARY DISEASE
     Route: 055
  2. SPIRIVA [Suspect]
     Indication: EMPHYSEMA
  3. SPIRIVA [Suspect]
     Indication: BRONCHITIS CHRONIC
  4. ALBUTEROL [Concomitant]
  5. UNIPHYL [Concomitant]
  6. VENTOLIN [Concomitant]
     Route: 055
  7. SLO-PHYLLIN [Concomitant]
  8. PREVENTIAL [Concomitant]
     Route: 055

REACTIONS (5)
  - CONSTIPATION [None]
  - DRUG INEFFECTIVE [None]
  - EYE PAIN [None]
  - SINUS HEADACHE [None]
  - URINE OUTPUT DECREASED [None]
